FAERS Safety Report 8600234 (Version 2)
Quarter: 2013Q1

REPORT INFORMATION
  Report Type: Spontaneous
  Country: CN (occurrence: CN)
  Receive Date: 20120605
  Receipt Date: 20130123
  Transmission Date: 20140127
  Serious: Yes (Death, Other)
  Sender: FDA-Public Use
  Company Number: CN-SPECTRUM PHARMACEUTICALS, INC.-12-F-CN-00083

PATIENT
  Sex: 0

DRUGS (7)
  1. FLUOROURACIL [Suspect]
     Indication: COLORECTAL CANCER
     Dosage: UNK
     Route: 065
  2. LEUCOVORIN [Suspect]
     Indication: COLORECTAL CANCER
     Dosage: UNK
     Route: 065
  3. OXALIPLATIN [Suspect]
     Indication: COLORECTAL CANCER
     Dosage: UNK
     Route: 065
  4. IRINOTECAN [Suspect]
     Indication: COLORECTAL CANCER
     Dosage: UNK
     Route: 065
  5. MITOMYCIN [Suspect]
     Indication: COLORECTAL CANCER
     Dosage: UNK
     Route: 065
  6. CAPECITABINE [Suspect]
     Indication: COLORECTAL CANCER
     Dosage: UNK
     Route: 065
  7. DEXAMETHASONE [Concomitant]
     Indication: ANTIEMETIC SUPPORTIVE CARE
     Dosage: UNK
     Route: 042

REACTIONS (10)
  - Ketoacidosis [Fatal]
  - Coma acidotic [Fatal]
  - Cardiac disorder [Fatal]
  - Cerebrovascular accident [Fatal]
  - Diabetes mellitus [Recovered/Resolved]
  - Impaired fasting glucose [Recovered/Resolved]
  - Nephropathy [Unknown]
  - Hyperglycaemia [Recovered/Resolved]
  - Neuropathy peripheral [Unknown]
  - Gastrointestinal disorder [Unknown]
